FAERS Safety Report 6250857-7 (Version None)
Quarter: 2009Q2

REPORT INFORMATION
  Report Type: 
  Country: None (occurrence: None)
  Receive Date: 20090630
  Receipt Date: 20090113
  Transmission Date: 20091009
  Serious: No
  Sender: FDA-Public Use
  Company Number: US-ABBOTT-09P-163-0497841-00

PATIENT
  Sex: Female

DRUGS (16)
  1. ZEMPLAR [Suspect]
     Indication: HYPERPARATHYROIDISM
     Dates: start: 20080401
  2. SYNTHROID [Concomitant]
     Indication: DRUG USE FOR UNKNOWN INDICATION
  3. TOPROL-XL [Concomitant]
     Indication: DRUG USE FOR UNKNOWN INDICATION
  4. BYETTA [Concomitant]
     Indication: DRUG USE FOR UNKNOWN INDICATION
  5. JANUVIA [Concomitant]
     Indication: DRUG USE FOR UNKNOWN INDICATION
  6. PLAVIX [Concomitant]
     Indication: DRUG USE FOR UNKNOWN INDICATION
  7. AVAPRO [Concomitant]
     Indication: DRUG USE FOR UNKNOWN INDICATION
  8. ALLUIPRINOL [Concomitant]
     Indication: DRUG USE FOR UNKNOWN INDICATION
  9. BUMEX [Concomitant]
     Indication: DRUG USE FOR UNKNOWN INDICATION
  10. ZANTAC [Concomitant]
     Indication: DRUG USE FOR UNKNOWN INDICATION
  11. POTASSIUM CHLORIDE [Concomitant]
     Indication: DRUG USE FOR UNKNOWN INDICATION
  12. DETROL [Concomitant]
     Indication: DRUG USE FOR UNKNOWN INDICATION
  13. LIPITOR [Concomitant]
     Indication: DRUG USE FOR UNKNOWN INDICATION
  14. LOVAS [Concomitant]
     Indication: DRUG USE FOR UNKNOWN INDICATION
  15. FOLIC ACID [Concomitant]
     Indication: DRUG USE FOR UNKNOWN INDICATION
  16. ASPIRIN [Concomitant]
     Indication: DRUG USE FOR UNKNOWN INDICATION

REACTIONS (1)
  - DYSGEUSIA [None]
